FAERS Safety Report 21504851 (Version 2)
Quarter: 2022Q4

REPORT INFORMATION
  Report Type: Spontaneous
  Country: PL (occurrence: PL)
  Receive Date: 20221025
  Receipt Date: 20221101
  Transmission Date: 20230112
  Serious: Yes (Other)
  Sender: FDA-Public Use
  Company Number: PL-GILEAD-2022-0602519

PATIENT
  Sex: Male

DRUGS (4)
  1. BIKTARVY [Suspect]
     Active Substance: BICTEGRAVIR SODIUM\EMTRICITABINE\TENOFOVIR ALAFENAMIDE FUMARATE
     Indication: HIV infection
     Dosage: UNK
     Route: 065
     Dates: start: 20210716
  2. FLUCONAZOLE [Concomitant]
     Active Substance: FLUCONAZOLE
  3. BISEPTOL [Concomitant]
     Active Substance: SULFAMETHOXAZOLE\TRIMETHOPRIM
  4. BISOPROLOL [Concomitant]
     Active Substance: BISOPROLOL

REACTIONS (10)
  - Progressive multifocal leukoencephalopathy [Unknown]
  - Immune reconstitution inflammatory syndrome [Recovered/Resolved]
  - Mixed anxiety and depressive disorder [Unknown]
  - Asthenia [Unknown]
  - Asthenia [Unknown]
  - Diplopia [Unknown]
  - Dyslipidaemia [Unknown]
  - Arthralgia [Recovered/Resolved]
  - Urticaria [Unknown]
  - Fatigue [Unknown]

NARRATIVE: CASE EVENT DATE: 20210801
